FAERS Safety Report 6685436-0 (Version None)
Quarter: 2010Q2

REPORT INFORMATION
  Report Type: 
  Country: None (occurrence: None)
  Receive Date: 20100419
  Receipt Date: 20100412
  Transmission Date: 20101027
  Serious: Yes (Other)
  Sender: FDA-Public Use
  Company Number: US-ASTRAZENECA-2007UW01958

PATIENT
  Age: 59 Year
  Sex: Female
  Weight: 70.5 kg

DRUGS (42)
  1. SEROQUEL [Suspect]
     Indication: SLEEP DISORDER
     Dosage: 100 MG TO 300 MG
     Route: 048
     Dates: start: 20020823, end: 20060517
  2. SEROQUEL [Suspect]
     Indication: DEPRESSION
     Dosage: 100 MG TO 300 MG
     Route: 048
     Dates: start: 20020823, end: 20060517
  3. EFFEXOR [Concomitant]
     Dates: start: 20061101
  4. NEURONTIN [Concomitant]
  5. ATENOL/CHLORIDE [Concomitant]
  6. PREMARIN [Concomitant]
  7. REMERON [Concomitant]
  8. CELEXA [Concomitant]
  9. HYDROCODONE BITARTRATE AND ACETAMINOPHEN [Concomitant]
  10. LEVOXYL [Concomitant]
  11. CEPHALEXIN [Concomitant]
  12. CLONAZEPAM [Concomitant]
  13. PRILOSEC [Concomitant]
  14. XENICAL [Concomitant]
  15. DIFLUCAN [Concomitant]
  16. PAROXETINE HCL [Concomitant]
  17. KETOCONAZOLE [Concomitant]
  18. QUININE SULFATE [Concomitant]
  19. GABAPENTIN [Concomitant]
  20. CARBIDOPA/LEVO [Concomitant]
  21. AMBIEN [Concomitant]
  22. ZYRTEC [Concomitant]
     Route: 048
  23. LITHIUM CARBONATE [Concomitant]
     Route: 048
  24. PROMETHEGAN [Concomitant]
     Route: 054
  25. LONOX [Concomitant]
     Route: 048
  26. LYRICA [Concomitant]
     Route: 048
  27. COLESTID [Concomitant]
     Route: 048
  28. CARISOPRODOL [Concomitant]
     Route: 048
  29. DICYCLOMINE [Concomitant]
     Route: 048
  30. GLIPIZIDE [Concomitant]
  31. METFORMIN HCL [Concomitant]
     Route: 048
  32. MORPHINE [Concomitant]
     Dosage: 10 MG/ML
     Route: 042
  33. AMARYL [Concomitant]
     Route: 048
  34. VICODIN [Concomitant]
     Route: 048
  35. POTASSIUM [Concomitant]
     Route: 048
  36. DICLOFENAC SODIUM [Concomitant]
     Route: 048
  37. FLUOXETINE [Concomitant]
     Route: 048
  38. NEXIUM [Concomitant]
     Route: 048
  39. ALPRAZOLAM [Concomitant]
     Dosage: 0.25 MG-0.50 MG
  40. SALSALATE [Concomitant]
     Route: 048
  41. WELCHOL [Concomitant]
     Dosage: 625 MG, 3 TABS TWICE A DAY
     Route: 048
  42. ZETIA [Concomitant]
     Route: 048

REACTIONS (7)
  - HEADACHE [None]
  - HEPATIC ENZYME INCREASED [None]
  - HEPATIC STEATOSIS [None]
  - LIVER INJURY [None]
  - NEUROPATHY PERIPHERAL [None]
  - OEDEMA PERIPHERAL [None]
  - TYPE 2 DIABETES MELLITUS [None]
